FAERS Safety Report 6370912-0 (Version None)
Quarter: 2009Q3

REPORT INFORMATION
  Report Type: 
  Country: None (occurrence: None)
  Receive Date: 20090923
  Receipt Date: 20070515
  Transmission Date: 20100115
  Serious: Yes (Other)
  Sender: FDA-Public Use
  Company Number: US-ASTRAZENECA-2006UW22833

PATIENT
  Sex: Female
  Weight: 101.2 kg

DRUGS (18)
  1. SEROQUEL [Suspect]
     Indication: SLEEP DISORDER
     Dosage: 25 - 200 MG FLUCTUATING
     Route: 048
     Dates: start: 20020306
  2. SEROQUEL [Suspect]
     Dosage: 100 MG TO 200 MG
     Route: 048
     Dates: start: 20020506, end: 20021201
  3. RISPERDAL [Concomitant]
     Dates: start: 20001122, end: 20050307
  4. TRILAFON [Concomitant]
     Dates: start: 19990101
  5. ZYPREXA [Concomitant]
     Dosage: 10MG TO 25 MG
     Dates: start: 19991001, end: 20000901
  6. NEURONTIN [Concomitant]
     Indication: DIABETIC NEUROPATHY
     Dosage: 100 - 300 MG FLUCTUATING
     Dates: start: 20020419
  7. WELLBUTRIN SR [Concomitant]
     Indication: DEPRESSION
     Dosage: 150 - 300 MG
     Dates: start: 20011201
  8. GABITRIL [Concomitant]
     Dosage: 2-4 MG
     Dates: start: 20011024
  9. LIPITOR [Concomitant]
     Indication: HYPERLIPIDAEMIA
     Dosage: 10-80 MG FLUCTUATING
     Dates: start: 20000203
  10. TRICOR [Concomitant]
     Indication: HYPERLIPIDAEMIA
     Dates: start: 20000203
  11. TRICOR [Concomitant]
     Dates: start: 20011211
  12. TEMAZEPAM [Concomitant]
     Indication: INSOMNIA
     Dosage: 15 - 30 MG
     Dates: start: 20011221
  13. BETAMETH VAL [Concomitant]
     Dosage: 0.1%
     Dates: start: 20011222
  14. DEPAKOTE [Concomitant]
     Indication: BIPOLAR DISORDER
     Dates: start: 19991112
  15. REMERON [Concomitant]
     Indication: BIPOLAR DISORDER
     Dosage: 15 - 30 MG
     Dates: start: 19991009
  16. EFFEXOR XR [Concomitant]
     Dates: start: 19991112
  17. FUROSEMIDE [Concomitant]
     Dates: start: 19990922
  18. LOTENSIN [Concomitant]
     Dates: start: 19990922

REACTIONS (2)
  - PANCREATITIS [None]
  - TYPE 2 DIABETES MELLITUS [None]
